FAERS Safety Report 6276354-0 (Version None)
Quarter: 2009Q3

REPORT INFORMATION
  Report Type: 
  Country: None (occurrence: None)
  Receive Date: 20090722
  Receipt Date: 20090716
  Transmission Date: 20100115
  Serious: Yes (Death)
  Sender: FDA-Public Use
  Company Number: PHHY2009CO29470

PATIENT
  Sex: Male

DRUGS (2)
  1. ACLASTA [Suspect]
     Dosage: UNK
     Route: 042
  2. CHEMOTHERAPEUTICS NOS [Concomitant]
     Indication: BONE SARCOMA
     Dosage: UNK

REACTIONS (1)
  - DEATH [None]
